FAERS Safety Report 6985482-3 (Version None)
Quarter: 2010Q3

REPORT INFORMATION
  Report Type: 
  Country: None (occurrence: None)
  Receive Date: 20100915
  Receipt Date: 20100907
  Transmission Date: 20110219
  Serious: Yes (Hospitalization)
  Sender: FDA-Public Use
  Company Number: B0657079B

PATIENT
  Sex: Female
  Weight: 70 kg

DRUGS (4)
  1. LAPATINIB [Suspect]
     Indication: BREAST CANCER
     Dosage: 1000MG PER DAY
     Route: 048
     Dates: start: 20100309
  2. DOCETAXEL [Suspect]
     Indication: BREAST CANCER
     Dosage: 171MG EVERY 3 WEEKS
     Route: 042
     Dates: start: 20100622
  3. EPIRUBICIN [Suspect]
     Indication: BREAST CANCER
     Dosage: 154MG EVERY 3 WEEKS
     Route: 042
     Dates: start: 20100309
  4. CYCLOPHOSPHAMIDE [Suspect]
     Indication: BREAST CANCER
     Dosage: 1026MG EVERY 3 WEEKS
     Route: 042
     Dates: start: 20100309

REACTIONS (4)
  - GENERAL PHYSICAL HEALTH DETERIORATION [None]
  - HYPOKALAEMIA [None]
  - NAUSEA [None]
  - PERICARDITIS [None]
